FAERS Safety Report 25236138 (Version 1)
Quarter: 2025Q2

REPORT INFORMATION
  Report Type: Spontaneous
  Country: FR (occurrence: FR)
  Receive Date: 20250424
  Receipt Date: 20250424
  Transmission Date: 20250716
  Serious: Yes (Hospitalization)
  Sender: MYLAN
  Company Number: None

PATIENT
  Age: 50 Year
  Sex: Female

DRUGS (24)
  1. ALPRAZOLAM [Suspect]
     Active Substance: ALPRAZOLAM
     Indication: Product used for unknown indication
     Dosage: QD (UP TO 2 MG/DAY,0.25MG: 1-1-1-1 (FOR APPROXIMATELY 2 YEARS)
  2. ALPRAZOLAM [Suspect]
     Active Substance: ALPRAZOLAM
     Dosage: QD (UP TO 2 MG/DAY,0.25MG: 1-1-1-1 (FOR APPROXIMATELY 2 YEARS)
     Route: 048
  3. ALPRAZOLAM [Suspect]
     Active Substance: ALPRAZOLAM
     Dosage: QD (UP TO 2 MG/DAY,0.25MG: 1-1-1-1 (FOR APPROXIMATELY 2 YEARS)
     Route: 048
  4. ALPRAZOLAM [Suspect]
     Active Substance: ALPRAZOLAM
     Dosage: QD (UP TO 2 MG/DAY,0.25MG: 1-1-1-1 (FOR APPROXIMATELY 2 YEARS)
  5. ZOPICLONE [Suspect]
     Active Substance: ZOPICLONE
     Indication: Product used for unknown indication
     Dosage: QD (UP TO 15 MG AT BEDTIME, 1 TABLET AT BEDTIME FOR 5-6 YEARS)
  6. ZOPICLONE [Suspect]
     Active Substance: ZOPICLONE
     Dosage: QD (UP TO 15 MG AT BEDTIME, 1 TABLET AT BEDTIME FOR 5-6 YEARS)
     Route: 048
  7. ZOPICLONE [Suspect]
     Active Substance: ZOPICLONE
     Dosage: QD (UP TO 15 MG AT BEDTIME, 1 TABLET AT BEDTIME FOR 5-6 YEARS)
     Route: 048
  8. ZOPICLONE [Suspect]
     Active Substance: ZOPICLONE
     Dosage: QD (UP TO 15 MG AT BEDTIME, 1 TABLET AT BEDTIME FOR 5-6 YEARS)
  9. SKENAN [Suspect]
     Active Substance: MORPHINE SULFATE
     Indication: Product used for unknown indication
  10. SKENAN [Suspect]
     Active Substance: MORPHINE SULFATE
     Route: 048
  11. SKENAN [Suspect]
     Active Substance: MORPHINE SULFATE
     Route: 048
  12. SKENAN [Suspect]
     Active Substance: MORPHINE SULFATE
  13. MORPHINE SULFATE [Suspect]
     Active Substance: MORPHINE SULFATE
     Indication: Product used for unknown indication
  14. MORPHINE SULFATE [Suspect]
     Active Substance: MORPHINE SULFATE
     Route: 048
  15. MORPHINE SULFATE [Suspect]
     Active Substance: MORPHINE SULFATE
     Route: 048
  16. MORPHINE SULFATE [Suspect]
     Active Substance: MORPHINE SULFATE
  17. FLUOXETINE [Concomitant]
     Active Substance: FLUOXETINE HYDROCHLORIDE
  18. FLUOXETINE [Concomitant]
     Active Substance: FLUOXETINE HYDROCHLORIDE
     Route: 065
  19. FLUOXETINE [Concomitant]
     Active Substance: FLUOXETINE HYDROCHLORIDE
     Route: 065
  20. FLUOXETINE [Concomitant]
     Active Substance: FLUOXETINE HYDROCHLORIDE
  21. AMITRIPTYLINE HYDROCHLORIDE [Concomitant]
     Active Substance: AMITRIPTYLINE HYDROCHLORIDE
  22. AMITRIPTYLINE HYDROCHLORIDE [Concomitant]
     Active Substance: AMITRIPTYLINE HYDROCHLORIDE
     Route: 065
  23. AMITRIPTYLINE HYDROCHLORIDE [Concomitant]
     Active Substance: AMITRIPTYLINE HYDROCHLORIDE
     Route: 065
  24. AMITRIPTYLINE HYDROCHLORIDE [Concomitant]
     Active Substance: AMITRIPTYLINE HYDROCHLORIDE

REACTIONS (5)
  - Treatment noncompliance [Recovering/Resolving]
  - Depression [Recovering/Resolving]
  - Anxiety [Recovering/Resolving]
  - Decreased appetite [Recovering/Resolving]
  - Drug abuse [Recovering/Resolving]

NARRATIVE: CASE EVENT DATE: 20250301
